FAERS Safety Report 17595102 (Version 14)
Quarter: 2021Q3

REPORT INFORMATION
  Report Type: Spontaneous
  Country: JP (occurrence: JP)
  Receive Date: 20200328
  Receipt Date: 20210706
  Transmission Date: 20211014
  Serious: Yes (Hospitalization, Other)
  Sender: FDA-Public Use
  Company Number: JP-AMGEN-JPNSP2020049520

PATIENT
  Age: 53 Year
  Sex: Female
  Weight: 55.1 kg

DRUGS (14)
  1. ALFAROL [Concomitant]
     Active Substance: ALFACALCIDOL
     Indication: HYPERPARATHYROIDISM SECONDARY
     Dosage: 0.25 UG, EVERYDAY
     Route: 048
  2. PARSABIV [Suspect]
     Active Substance: ETELCALCETIDE HYDROCHLORIDE
     Indication: HYPERPARATHYROIDISM SECONDARY
     Dosage: 5 MILLIGRAM, Q56H
     Route: 010
     Dates: start: 20180820
  3. EPOETIN ALFA [Concomitant]
     Active Substance: ERYTHROPOIETIN
     Indication: NEPHROGENIC ANAEMIA
     Dosage: 3000 INTERNATIONAL UNIT, QWK
     Route: 042
     Dates: end: 20201012
  4. KAYEXALATE [Concomitant]
     Active Substance: SODIUM POLYSTYRENE SULFONATE
     Indication: HYPERKALAEMIA
     Dosage: 6.54 G, EVERYDAY
     Route: 048
  5. RENAGEL [Concomitant]
     Active Substance: SEVELAMER HYDROCHLORIDE
     Indication: HYPERPHOSPHATAEMIA
     Dosage: 6000 MILLIGRAM, QD
     Route: 048
     Dates: end: 20190222
  6. OMEPRAL [OMEPRAZOLE] [Concomitant]
     Active Substance: OMEPRAZOLE
     Indication: GASTROOESOPHAGEAL REFLUX DISEASE
     Dosage: 10 MILLIGRAM, QD
     Route: 048
  7. RIVOTRIL [Concomitant]
     Active Substance: CLONAZEPAM
     Indication: AUTONOMIC SEIZURE
     Dosage: 0.5 MG, EVERYDAY
     Route: 048
  8. EPOETIN ALFA [Concomitant]
     Active Substance: ERYTHROPOIETIN
     Dosage: 750 INTERNATIONAL UNIT, QWK
     Route: 042
     Dates: end: 20201012
  9. EPOETIN ALFA [Concomitant]
     Active Substance: ERYTHROPOIETIN
     Dosage: 1500 INTERNATIONAL UNIT, Q84H
     Route: 042
     Dates: start: 20201019
  10. OXAROL [Concomitant]
     Active Substance: MAXACALCITOL
     Indication: HYPERPARATHYROIDISM SECONDARY
     Dosage: 5 UG, QW
     Route: 042
  11. FESIN [SACCHARATED IRON OXIDE] [Concomitant]
     Active Substance: IRON SUCROSE
     Dosage: 40 MILLIGRAM, Q4WK
     Route: 042
  12. RENAGEL [Concomitant]
     Active Substance: SEVELAMER HYDROCHLORIDE
     Dosage: 1000 MILLIGRAM, Q8H
     Route: 048
     Dates: start: 20190223, end: 20210205
  13. OLMETEC [Concomitant]
     Active Substance: OLMESARTAN MEDOXOMIL
     Indication: HYPERTENSION
     Dosage: 10 MG, EVERYDAY
     Route: 048
  14. FOSRENOL [Concomitant]
     Active Substance: LANTHANUM CARBONATE
     Indication: HYPERPHOSPHATAEMIA
     Dosage: 250 MG, Q8H
     Route: 048

REACTIONS (3)
  - Cardiac failure [Recovering/Resolving]
  - Putamen haemorrhage [Not Recovered/Not Resolved]
  - Cellulitis [Recovering/Resolving]

NARRATIVE: CASE EVENT DATE: 20200217
